FAERS Safety Report 18716906 (Version 5)
Quarter: 2021Q3

REPORT INFORMATION
  Report Type: Spontaneous
  Country: US (occurrence: US)
  Receive Date: 20210108
  Receipt Date: 20210714
  Transmission Date: 20211014
  Serious: Yes (Other)
  Sender: FDA-Public Use
  Company Number: NVSC2021US001908

PATIENT
  Sex: Female

DRUGS (2)
  1. PROGESTERONE. [Concomitant]
     Active Substance: PROGESTERONE
     Indication: PRODUCT USED FOR UNKNOWN INDICATION
     Dosage: UNK
     Route: 065
  2. VIVELLE?DOT [Suspect]
     Active Substance: ESTRADIOL
     Indication: PRODUCT USED FOR UNKNOWN INDICATION
     Dosage: 2 DF, QW (STRENGTH: 0.0375)
     Route: 062

REACTIONS (8)
  - Drug ineffective [Unknown]
  - Product quality issue [Unknown]
  - Pain [Unknown]
  - Illness [Unknown]
  - Muscle spasms [Unknown]
  - Haemorrhage [Not Recovered/Not Resolved]
  - Feeling abnormal [Unknown]
  - Product adhesion issue [Unknown]
